FAERS Safety Report 4597922-8 (Version None)
Quarter: 2005Q1

REPORT INFORMATION
  Report Type: 
  Country: None (occurrence: None)
  Receive Date: 20050301
  Receipt Date: 20050220
  Transmission Date: 20050727
  Serious: Yes (Hospitalization)
  Sender: FDA-Public Use
  Company Number: 163-20785-05020390

PATIENT
  Age: 49 Year
  Sex: Male

DRUGS (17)
  1. THALOMID [Suspect]
     Indication: RHEUMATOID ARTHRITIS
     Dosage: 50 MG, DAILY, ORAL
     Route: 048
  2. IMIPENEM (IMIPENEM) [Concomitant]
  3. BACTRIM [Concomitant]
  4. MORPHINE (MORPHINE) [Concomitant]
  5. LORAZEPAM [Concomitant]
  6. ALBUTEROL [Concomitant]
  7. IPRATROPIUM BROMIDE [Concomitant]
  8. CELEXA [Concomitant]
  9. CLONAZEPAM [Concomitant]
  10. CYTOXAN [Concomitant]
  11. LOVENOX [Concomitant]
  12. PEPCID [Concomitant]
  13. FOLIC ACID [Concomitant]
  14. HYDROCORTISONE [Concomitant]
  15. ARAVA [Concomitant]
  16. MIRALAX [Concomitant]
  17. REMERON [Concomitant]

REACTIONS (9)
  - BLOOD ALBUMIN DECREASED [None]
  - DYSPHAGIA [None]
  - HAEMATOCRIT DECREASED [None]
  - HAEMOGLOBIN DECREASED [None]
  - MALNUTRITION [None]
  - PCO2 INCREASED [None]
  - PO2 DECREASED [None]
  - PREALBUMIN DECREASED [None]
  - RESPIRATORY FAILURE [None]
